FAERS Safety Report 17302342 (Version 1)
Quarter: 2020Q1

REPORT INFORMATION
  Report Type: Spontaneous
  Country: CA (occurrence: CA)
  Receive Date: 20200122
  Receipt Date: 20200122
  Transmission Date: 20200409
  Serious: Yes (Other)
  Sender: FDA-Public Use
  Company Number: CA-SHIRE-CA202002018

PATIENT

DRUGS (1)
  1. GAMMAGARD LIQUID [Suspect]
     Active Substance: HUMAN IMMUNOGLOBULIN G
     Indication: AUTOIMMUNE RETINOPATHY
     Dosage: 150 MILLILITER
     Route: 042

REACTIONS (7)
  - Bradycardia [Recovered/Resolved]
  - Hypotensive transfusion reaction [Recovered/Resolved]
  - Nausea [Recovered/Resolved]
  - Blood pressure decreased [Recovered/Resolved]
  - Vomiting [Recovered/Resolved]
  - Intentional product use issue [Unknown]
  - Heart rate decreased [Recovered/Resolved]
